FAERS Safety Report 16761879 (Version 2)
Quarter: 2019Q4

REPORT INFORMATION
  Report Type: Spontaneous
  Country: CA (occurrence: CA)
  Receive Date: 20190830
  Receipt Date: 20191009
  Transmission Date: 20200122
  Serious: Yes (Other)
  Sender: FDA-Public Use
  Company Number: CA-GILEAD-2019-0426082

PATIENT
  Age: 43 Year
  Sex: Female

DRUGS (3)
  1. BIKTARVY [Suspect]
     Active Substance: BICTEGRAVIR SODIUM\EMTRICITABINE\TENOFOVIR ALAFENAMIDE FUMARATE
     Indication: HIV INFECTION
     Dosage: UNK
     Route: 065
     Dates: start: 201812
  2. FERROUS SULPHATE [FERROUS SULFATE] [Concomitant]
     Active Substance: FERROUS SULFATE
     Indication: IRON DEFICIENCY ANAEMIA
     Dosage: TAKEN 3 HOURS AFTER TAKING HER BIKTARVY
     Route: 048
     Dates: end: 20190725
  3. FIBRISTAL [Concomitant]
     Active Substance: ULIPRISTAL
     Indication: UTERINE LEIOMYOMA

REACTIONS (2)
  - Blood HIV RNA increased [Recovered/Resolved]
  - Viral load increased [Unknown]

NARRATIVE: CASE EVENT DATE: 20190613
